FAERS Safety Report 5309692-6 (Version None)
Quarter: 2007Q2

REPORT INFORMATION
  Report Type: 
  Country: None (occurrence: None)
  Receive Date: 20070427
  Receipt Date: 20070417
  Transmission Date: 20071010
  Serious: Yes (Other)
  Sender: FDA-Public Use
  Company Number: JP-ROCHE-487071

PATIENT
  Age: 51 Year
  Sex: Female

DRUGS (5)
  1. TAMIFLU [Suspect]
     Route: 048
     Dates: start: 20070226, end: 20070302
  2. MEDICON [Concomitant]
     Dosage: GENERIC REPORTED AS DEXTROMETHORPHAN HYDROBROMIDE.
     Route: 048
     Dates: start: 20070226, end: 20070302
  3. MEPTIN [Concomitant]
     Dosage: BEFORE BEDTIME.
     Route: 048
     Dates: start: 20070226, end: 20070302
  4. ZEFFIX [Concomitant]
     Dosage: DRUG NAME REPORTED AS ZEFIX.
     Route: 048
  5. NEORAL [Concomitant]
     Route: 048

REACTIONS (1)
  - LOSS OF CONSCIOUSNESS [None]
